FAERS Safety Report 10146506 (Version 1)
Quarter: 2014Q2

REPORT INFORMATION
  Report Type: Spontaneous
  Country: BR (occurrence: BR)
  Receive Date: 20140501
  Receipt Date: 20140501
  Transmission Date: 20141212
  Serious: Yes (Other)
  Sender: FDA-Public Use
  Company Number: BR-PFIZER INC-2014116368

PATIENT
  Age: 56 Year
  Sex: Female
  Weight: 58 kg

DRUGS (2)
  1. CITALOR [Suspect]
     Indication: BLOOD CHOLESTEROL
     Dosage: 20MG (1 TABLET) DAILY
     Route: 048
     Dates: start: 2012
  2. MODURETIC [Concomitant]
     Indication: BLOOD PRESSURE
     Dosage: 25MG (1 TABLET) DAILY
     Dates: start: 2010

REACTIONS (1)
  - Arthritis [Not Recovered/Not Resolved]
